FAERS Safety Report 15506555 (Version 2)
Quarter: 2018Q4

REPORT INFORMATION
  Report Type: Report from Study
  Country: CA (occurrence: CA)
  Receive Date: 20181016
  Receipt Date: 20181016
  Transmission Date: 20190205
  Serious: Yes (Hospitalization, Other)
  Sender: FDA-Public Use
  Company Number: CA-IPSEN BIOPHARMACEUTICALS, INC.-2018-15553

PATIENT
  Sex: Male
  Weight: 96.7 kg

DRUGS (1)
  1. SOMATULINE AUTOGEL 120MG [Suspect]
     Active Substance: LANREOTIDE ACETATE
     Indication: CARCINOID TUMOUR
     Route: 058
     Dates: start: 20180111

REACTIONS (8)
  - Flushing [Recovering/Resolving]
  - Pulmonary congestion [Unknown]
  - Pyrexia [Not Recovered/Not Resolved]
  - Breath sounds abnormal [Unknown]
  - Fatigue [Recovering/Resolving]
  - Asthenia [Unknown]
  - Malaise [Recovering/Resolving]
  - Cough [Recovering/Resolving]
